FAERS Safety Report 22057912 (Version 6)
Quarter: 2024Q2

REPORT INFORMATION
  Report Type: Spontaneous
  Country: US (occurrence: None)
  Receive Date: 20230303
  Receipt Date: 20240516
  Transmission Date: 20240716
  Serious: Yes (Hospitalization)
  Sender: FDA-Public Use
  Company Number: US-ROCHE-3298825

PATIENT
  Sex: Female

DRUGS (10)
  1. XOLAIR [Suspect]
     Active Substance: OMALIZUMAB
     Indication: Idiopathic urticaria
     Dosage: STRENGTH: 150 MG/ML
     Route: 058
     Dates: start: 20200914
  2. XOLAIR [Suspect]
     Active Substance: OMALIZUMAB
  3. XOLAIR [Suspect]
     Active Substance: OMALIZUMAB
     Indication: Mast cell activation syndrome
  4. XOLAIR [Suspect]
     Active Substance: OMALIZUMAB
  5. HIZENTRA [Concomitant]
     Active Substance: HUMAN IMMUNOGLOBULIN G
     Indication: Selective IgA immunodeficiency
  6. CETIRIZINE [Concomitant]
     Active Substance: CETIRIZINE HYDROCHLORIDE
     Dosage: TWO TABLET TWICE A DAY
  7. H2 BLOCKER [CIMETIDINE HYDROCHLORIDE] [Concomitant]
  8. MONTELUKAST [Concomitant]
     Active Substance: MONTELUKAST SODIUM
     Dosage: TAKEN  AT NIGHT
  9. CROMOLYN [Concomitant]
     Active Substance: CROMOLYN
  10. EPINEPHRINE [Concomitant]
     Active Substance: EPINEPHRINE
     Route: 030

REACTIONS (8)
  - Anaphylactic reaction [Unknown]
  - Exposure to fungus [Unknown]
  - Memory impairment [Unknown]
  - Swelling [Unknown]
  - Erythema [Unknown]
  - Aphonia [Unknown]
  - Wheezing [Unknown]
  - Throat tightness [Unknown]
